FAERS Safety Report 10915652 (Version 3)
Quarter: 2015Q2

REPORT INFORMATION
  Report Type: Spontaneous
  Country: US (occurrence: US)
  Receive Date: 20150316
  Receipt Date: 20150427
  Transmission Date: 20150821
  Serious: No
  Sender: FDA-Public Use
  Company Number: US-009507513-1503USA000461

PATIENT
  Age: 19 Year
  Sex: Female
  Weight: 86.17 kg

DRUGS (1)
  1. NEXPLANON [Suspect]
     Active Substance: ETONOGESTREL
     Dosage: UNK
     Route: 059
     Dates: start: 20130819

REACTIONS (2)
  - Implant site pruritus [Unknown]
  - Implant site discolouration [Unknown]

NARRATIVE: CASE EVENT DATE: 20150224
